FAERS Safety Report 4923327-3 (Version None)
Quarter: 2006Q1

REPORT INFORMATION
  Report Type: 
  Country: None (occurrence: None)
  Receive Date: 20060227
  Receipt Date: 20060216
  Transmission Date: 20060701
  Serious: Yes (Other)
  Sender: FDA-Public Use
  Company Number: GB-JNJFOC-20060204373

PATIENT
  Age: 59 Year
  Sex: Female
  Weight: 68.3 kg

DRUGS (2)
  1. REMICADE [Suspect]
     Indication: RHEUMATOID ARTHRITIS
     Route: 042
  2. METHOTREXATE [Concomitant]
     Indication: RHEUMATOID ARTHRITIS
     Route: 042

REACTIONS (4)
  - ABDOMINAL DISTENSION [None]
  - ANGIONEUROTIC OEDEMA [None]
  - SWELLING [None]
  - URINARY RETENTION [None]
